FAERS Safety Report 13237698 (Version 1)
Quarter: 2017Q1

REPORT INFORMATION
  Report Type: Spontaneous
  Country: US (occurrence: US)
  Receive Date: 20170215
  Receipt Date: 20170215
  Transmission Date: 20170428
  Serious: No
  Sender: FDA-Public Use
  Company Number: US-ACCORD-046002

PATIENT
  Age: 52 Year
  Sex: Female
  Weight: 69.4 kg

DRUGS (1)
  1. CAPECITABINE. [Suspect]
     Active Substance: CAPECITABINE
     Indication: COLON CANCER
     Dosage: STRENGTH: 500 MG?3 TABLET PO BID X 14 DAYS, 7 DAYS OFF
     Route: 048
     Dates: start: 20160325

REACTIONS (3)
  - Neuropathy peripheral [Unknown]
  - Contusion [Unknown]
  - Skin discolouration [Unknown]
